FAERS Safety Report 14642059 (Version 2)
Quarter: 2018Q2

REPORT INFORMATION
  Report Type: Spontaneous
  Country: US (occurrence: US)
  Receive Date: 20180315
  Receipt Date: 20180510
  Transmission Date: 20180711
  Serious: Yes (Hospitalization, Other)
  Sender: FDA-Public Use
  Company Number: US-GLAXOSMITHKLINE-US2018GSK044357

PATIENT
  Age: 67 Year
  Sex: Male
  Weight: 91.16 kg

DRUGS (1)
  1. JALYN [Suspect]
     Active Substance: DUTASTERIDE\TAMSULOSIN HYDROCHLORIDE
     Indication: BENIGN PROSTATIC HYPERPLASIA
     Dosage: UNK
     Route: 048
     Dates: start: 2015

REACTIONS (3)
  - Cerebrovascular accident [Unknown]
  - Aneurysm [Unknown]
  - Hemiplegia [Unknown]

NARRATIVE: CASE EVENT DATE: 201701
